FAERS Safety Report 16652037 (Version 1)
Quarter: 2019Q3

REPORT INFORMATION
  Report Type: Spontaneous
  Country: US (occurrence: US)
  Receive Date: 20190617
  Receipt Date: 20190617
  Transmission Date: 20191004
  Serious: No
  Sender: FDA-Public Use
  Company Number: None

PATIENT
  Age: 57 Year

DRUGS (8)
  1. AZATHIOPRINE. [Concomitant]
     Active Substance: AZATHIOPRINE
  2. ATORVASTATIN [Concomitant]
     Active Substance: ATORVASTATIN
  3. XELJANZ XR [Suspect]
     Active Substance: TOFACITINIB CITRATE
     Indication: RHEUMATOID ARTHRITIS
     Route: 048
     Dates: start: 20190413
  4. CARVEDILOL. [Concomitant]
     Active Substance: CARVEDILOL
  5. CELECOXIB. [Concomitant]
     Active Substance: CELECOXIB
  6. BUPROPN HCL [Concomitant]
     Active Substance: BUPROPION HYDROCHLORIDE
  7. ESPMEPRA MAG [Concomitant]
  8. GABAPENTIN. [Concomitant]
     Active Substance: GABAPENTIN

REACTIONS (5)
  - Fall [None]
  - Rheumatoid arthritis [None]
  - Wrist fracture [None]
  - Product dose omission [None]
  - Insurance issue [None]

NARRATIVE: CASE EVENT DATE: 20190617
